FAERS Safety Report 4942760-7 (Version None)
Quarter: 2006Q1

REPORT INFORMATION
  Report Type: 
  Country: None (occurrence: None)
  Receive Date: 20060314
  Receipt Date: 20051220
  Transmission Date: 20060701
  Serious: Yes (Other)
  Sender: FDA-Public Use
  Company Number: SE-JNJFOC-20060302636

PATIENT
  Sex: Male

DRUGS (5)
  1. REOPRO [Suspect]
     Indication: CORONARY ANGIOPLASTY
  2. RETEPLASE [Concomitant]
  3. ASPIRIN [Concomitant]
     Route: 048
  4. PLAVIX [Concomitant]
     Route: 048
  5. HEPARIN [Concomitant]
     Dosage: 4000 IE

REACTIONS (3)
  - DRUG INEFFECTIVE [None]
  - SHOCK [None]
  - THROMBOCYTOPENIA [None]
